FAERS Safety Report 16869334 (Version 1)
Quarter: 2019Q3

REPORT INFORMATION
  Report Type: Spontaneous
  Country: DE (occurrence: DE)
  Receive Date: 20190930
  Receipt Date: 20190930
  Transmission Date: 20191005
  Serious: Yes (Congenital Anomaly, Other)
  Sender: FDA-Public Use
  Company Number: DE-PFIZER INC-2019415726

PATIENT
  Sex: Male

DRUGS (2)
  1. OPIPRAMOL [Concomitant]
     Active Substance: OPIPRAMOL
     Dosage: 150 MG, UNK; 150 [MG / D (UP TO 50)]
     Route: 064
     Dates: start: 20180415, end: 20180515
  2. SERTRALINE HCL [Suspect]
     Active Substance: SERTRALINE HYDROCHLORIDE
     Dosage: 50 MG, 2X/DAY ((100MG/D (2X50) 2 SEPARATE DOSES))
     Route: 064
     Dates: start: 20180415, end: 20190122

REACTIONS (5)
  - Maternal exposure during pregnancy [Unknown]
  - Umbilical cord abnormality [Unknown]
  - Talipes [Unknown]
  - Foetal heart rate deceleration abnormality [Unknown]
  - Umbilical cord around neck [Unknown]

NARRATIVE: CASE EVENT DATE: 20190122
